FAERS Safety Report 10099137 (Version 3)
Quarter: 2015Q3

REPORT INFORMATION
  Report Type: Spontaneous
  Country: US (occurrence: US)
  Receive Date: 20140423
  Receipt Date: 20150813
  Transmission Date: 20151125
  Serious: Yes (Other)
  Sender: FDA-Public Use
  Company Number: US-GILEAD-2013-0067430

PATIENT
  Age: 66 Year
  Sex: Female

DRUGS (1)
  1. LETAIRIS [Suspect]
     Active Substance: AMBRISENTAN
     Indication: PULMONARY ARTERIAL HYPERTENSION
     Dosage: 5 MG, QD
     Route: 048
     Dates: start: 20120925

REACTIONS (5)
  - No therapeutic response [Unknown]
  - Feeling abnormal [Unknown]
  - Chest discomfort [Unknown]
  - Dyspnoea [Unknown]
  - Headache [Unknown]
